FAERS Safety Report 9603387 (Version 1)
Quarter: 2013Q4

REPORT INFORMATION
  Report Type: Spontaneous
  Country: GB (occurrence: GB)
  Receive Date: 20131007
  Receipt Date: 20131007
  Transmission Date: 20140711
  Serious: Yes (Other)
  Sender: FDA-Public Use
  Company Number: GB-009507513-1309GBR014344

PATIENT
  Age: 72 Year
  Sex: Male

DRUGS (7)
  1. LISINOPRIL [Suspect]
     Indication: HYPERTENSION
     Dosage: 40 MG, UNK
     Route: 048
  2. AMLODIPINE [Interacting]
     Indication: HYPERTENSION
     Dosage: 5 MG, UNK
  3. SIMVASTATIN [Interacting]
     Dosage: 40 MG, UNK
     Route: 048
  4. ATENOLOL [Concomitant]
  5. ATORVASTATIN [Concomitant]
  6. DOXAZOSIN MESYLATE [Concomitant]
  7. RANITIDINE [Concomitant]

REACTIONS (6)
  - Blood glucose increased [Unknown]
  - Drug interaction [Unknown]
  - Malaise [Unknown]
  - Arthralgia [Unknown]
  - Myalgia [Unknown]
  - White blood cell count increased [Unknown]
